FAERS Safety Report 11852270 (Version 2)
Quarter: 2016Q1

REPORT INFORMATION
  Report Type: Spontaneous
  Country: US (occurrence: US)
  Receive Date: 20151218
  Receipt Date: 20160111
  Transmission Date: 20160526
  Serious: Yes (Hospitalization)
  Sender: FDA-Public Use
  Company Number: US-LPDUSPRD-20151013

PATIENT
  Age: 30 Year
  Sex: Male

DRUGS (7)
  1. ESMOLOL HYDROCHLORIDE INJECTION (0517-1810-01) [Suspect]
     Active Substance: ESMOLOL HYDROCHLORIDE
     Dosage: INCREASED TO 300UG/KG/MIN
     Route: 042
  2. LABETALOL [Suspect]
     Active Substance: LABETALOL\LABETALOL HYDROCHLORIDE
     Dosage: TOTAL 2.2GM, FIRST 4 DAYS HOSP
     Route: 048
  3. LABETALOL [Suspect]
     Active Substance: LABETALOL\LABETALOL HYDROCHLORIDE
     Dosage: DOSE NOT PROVIDED
     Route: 042
  4. METOPROLOL. [Suspect]
     Active Substance: METOPROLOL
     Dosage: TOTAL 1.3 GM FIRST 4 DAYS HOSP
     Route: 048
  5. NITROPRUSSIDE [Concomitant]
     Active Substance: NITROPRUSSIDE
     Dosage: DOSE NOT PROVIDED
     Route: 042
  6. DILTIAZEM [Concomitant]
     Active Substance: DILTIAZEM
     Dosage: DOSE NOT PROVIDED
     Route: 042
  7. METOPROLOL INJECTION, USP (1355-10) [Suspect]
     Active Substance: METOPROLOL
     Dosage: BOLUS DOSE, NOS
     Route: 042

REACTIONS (6)
  - Toxicity to various agents [Unknown]
  - Acute kidney injury [Unknown]
  - Hypotension [Recovered/Resolved]
  - Abdominal distension [Unknown]
  - Hypoglycaemia [Recovered/Resolved]
  - Cardiomyopathy [Recovered/Resolved]
